FAERS Safety Report 14606227 (Version 1)
Quarter: 2018Q1

REPORT INFORMATION
  Report Type: Report from Study
  Country: DE (occurrence: DE)
  Receive Date: 20180307
  Receipt Date: 20180307
  Transmission Date: 20180509
  Serious: Yes (Hospitalization)
  Sender: FDA-Public Use
  Company Number: DE-ROCHE-1935855

PATIENT
  Age: 72 Year
  Sex: Male

DRUGS (11)
  1. ROACTEMRA [Suspect]
     Active Substance: TOCILIZUMAB
     Indication: RHEUMATOID ARTHRITIS
     Route: 058
     Dates: start: 20170322, end: 20170412
  2. ENBREL [Suspect]
     Active Substance: ETANERCEPT
     Route: 065
  3. TAMSULOSIN [Concomitant]
     Active Substance: TAMSULOSIN
  4. FLECAINIDE [Concomitant]
     Active Substance: FLECAINIDE
  5. ENBREL [Suspect]
     Active Substance: ETANERCEPT
     Indication: RHEUMATOID ARTHRITIS
     Route: 065
     Dates: end: 20170301
  6. DEKRISTOL [Concomitant]
     Active Substance: CHOLECALCIFEROL
     Route: 065
  7. ALENDRONIC ACID [Concomitant]
     Active Substance: ALENDRONIC ACID
     Route: 065
  8. ARCOXIA [Concomitant]
     Active Substance: ETORICOXIB
  9. METOPROLOL. [Concomitant]
     Active Substance: METOPROLOL
  10. MARCUMAR [Concomitant]
     Active Substance: PHENPROCOUMON
  11. CORTISONE [Concomitant]
     Active Substance: CORTISONE\HYDROCORTISONE
     Dosage: PULSE THERAPY 3 TIMES 30 MG
     Route: 065

REACTIONS (5)
  - Adrenal gland cancer [Not Recovered/Not Resolved]
  - Diarrhoea [Recovered/Resolved]
  - Acute kidney injury [Unknown]
  - Nosocomial infection [Unknown]
  - Discomfort [Recovered/Resolved]
